FAERS Safety Report 4629028-3 (Version None)
Quarter: 2005Q2

REPORT INFORMATION
  Report Type: 
  Country: None (occurrence: None)
  Receive Date: 20050405
  Receipt Date: 20050405
  Transmission Date: 20051028
  Serious: Yes (Death)
  Sender: FDA-Public Use
  Company Number: None

PATIENT
  Age: 42 Year
  Sex: Male
  Weight: 66.4 kg

DRUGS (10)
  1. DOCETAXEL [Suspect]
     Indication: PANCREATIC CARCINOMA
     Dosage: 62 MG IV
     Route: 042
     Dates: start: 20041117
  2. DOCETAXEL [Suspect]
     Indication: PANCREATIC CARCINOMA
     Dosage: 62 MG IV
     Route: 042
     Dates: start: 20041208
  3. IRINOTECAN HCL [Suspect]
     Dosage: 89 MG IV
     Route: 042
     Dates: start: 20041124
  4. IRINOTECAN HCL [Suspect]
     Dosage: 89 MG IV
     Route: 042
     Dates: start: 20041208
  5. ENOXAPARIN SODIUM [Concomitant]
  6. ZOFRAN [Concomitant]
  7. DEXAMETHASONE [Concomitant]
  8. ZOLOFT [Concomitant]
  9. PROTONIX [Concomitant]
  10. DURAGESIC-100 [Concomitant]

REACTIONS (6)
  - ABDOMINAL PAIN [None]
  - ASTHENIA [None]
  - JAUNDICE [None]
  - LETHARGY [None]
  - LIVER FUNCTION TEST ABNORMAL [None]
  - METASTASES TO LIVER [None]
